FAERS Safety Report 18766533 (Version 1)
Quarter: 2021Q1

REPORT INFORMATION
  Report Type: Other
  Country: DE (occurrence: DE)
  Receive Date: 20210121
  Receipt Date: 20210121
  Transmission Date: 20210419
  Serious: Yes (Congenital Anomaly, Other)
  Sender: FDA-Public Use
  Company Number: DE-MACLEODS PHARMACEUTICALS US LTD-MAC2021029788

PATIENT

DRUGS (5)
  1. ARIPIPRAZOLE  10 MG [Suspect]
     Active Substance: ARIPIPRAZOLE
     Indication: PRODUCT USED FOR UNKNOWN INDICATION
     Dosage: 10 MILLIGRAM, QD, 0. ? 34.2. GESTATIONAL WEEK
     Route: 064
     Dates: start: 20191107, end: 20200704
  2. GELOREVOICE [Concomitant]
     Indication: COUGH
     Dosage: UNK, 8.2. ? 9.5. GESTATIONAL WEEK
     Route: 064
     Dates: start: 20200104, end: 20200114
  3. RISPERIDON [Suspect]
     Active Substance: RISPERIDONE
     Indication: PRODUCT USED FOR UNKNOWN INDICATION
     Dosage: 0.5 MILLIGRAM, QD, 0. ? 21. GESTATIONAL WEEK
     Route: 064
     Dates: start: 20191107, end: 20200402
  4. INFLUSPLIT TETRA [Concomitant]
     Active Substance: INFLUENZA VIRUS VACCINE
     Indication: IMMUNISATION
     Dosage: UNK, 16.1. ? 16.1. GESTATIONAL WEEK
     Route: 064
     Dates: start: 20200228, end: 20200228
  5. L?THYROXIN [Concomitant]
     Active Substance: LEVOTHYROXINE SODIUM
     Indication: HYPOTHYROIDISM
     Dosage: 50 MICROGRAM, QD, 50 [MICROGRAM/D (BIS 25) ], 0. ? 34.2. GESTATIONAL WEEK
     Route: 064
     Dates: start: 20191107, end: 20200704

REACTIONS (2)
  - Foetal exposure during pregnancy [Unknown]
  - Atrial septal defect [Unknown]
